FAERS Safety Report 5087177-2 (Version None)
Quarter: 2006Q3

REPORT INFORMATION
  Report Type: 
  Country: None (occurrence: None)
  Receive Date: 20060821
  Receipt Date: 20060809
  Transmission Date: 20061208
  Serious: Yes (Other)
  Sender: FDA-Public Use
  Company Number: 2006092363

PATIENT
  Age: 65 Year
  Sex: Male

DRUGS (4)
  1. HALCION [Suspect]
     Indication: INSOMNIA
     Dosage: 0.25 MG (0.25 MG,1 IN 1 D), ORAL
     Route: 048
     Dates: start: 19990913
  2. EBASTEL (EBASTINE) [Suspect]
     Indication: PRURITUS
     Dosage: 10 MG (10 MG,1 IN 1 D), ORAL
     Route: 048
     Dates: start: 20060627
  3. LOXONIN (LOXOPROFEN SODIUM) [Concomitant]
  4. DASEN         (SERRAPEPTASE) [Concomitant]

REACTIONS (3)
  - AMNESIA [None]
  - DRUG INTERACTION [None]
  - PRURITUS [None]
